FAERS Safety Report 14456571 (Version 1)
Quarter: 2018Q1

REPORT INFORMATION
  Report Type: Spontaneous
  Country: FR (occurrence: FR)
  Receive Date: 20180130
  Receipt Date: 20180130
  Transmission Date: 20180509
  Serious: Yes (Other)
  Sender: FDA-Public Use
  Company Number: FR-MERCK KGAA-2041049

PATIENT
  Age: 80 Year
  Sex: Female
  Weight: 72 kg

DRUGS (1)
  1. NOVOTHYROX [Suspect]
     Active Substance: LEVOTHYROXINE SODIUM
     Indication: HYPOTHYROIDISM
     Route: 048
     Dates: start: 20170317, end: 20170930

REACTIONS (8)
  - Gait disturbance [Recovering/Resolving]
  - Blood thyroid stimulating hormone normal [Recovered/Resolved]
  - Insomnia [Recovering/Resolving]
  - Hypotonia [Recovering/Resolving]
  - Myalgia [Recovering/Resolving]
  - Pleural effusion [Recovering/Resolving]
  - Muscle twitching [Recovering/Resolving]
  - Nocturia [Recovering/Resolving]

NARRATIVE: CASE EVENT DATE: 20170430
